FAERS Safety Report 6844550-7 (Version None)
Quarter: 2010Q3

REPORT INFORMATION
  Report Type: 
  Country: None (occurrence: None)
  Receive Date: 20100715
  Receipt Date: 20100708
  Transmission Date: 20110219
  Serious: Yes (Hospitalization)
  Sender: FDA-Public Use
  Company Number: PHHO2010US10007

PATIENT
  Sex: Male
  Weight: 73.469 kg

DRUGS (7)
  1. AFINITOR [Suspect]
     Indication: OESOPHAGEAL CARCINOMA
     Dosage: 10 MG, QD
     Route: 048
     Dates: start: 20100112, end: 20100517
  2. OMEPRAZOLE [Concomitant]
  3. REGLAN [Concomitant]
  4. SORIATANE [Concomitant]
  5. FENOFIBRATE [Concomitant]
  6. MORPHINE [Concomitant]
  7. NITROGLYCERIN [Concomitant]

REACTIONS (8)
  - ACUTE MYOCARDIAL INFARCTION [None]
  - ASTHENIA [None]
  - CACHEXIA [None]
  - CHEST DISCOMFORT [None]
  - CHEST PAIN [None]
  - CORONARY ARTERY OCCLUSION [None]
  - NAUSEA [None]
  - VOMITING [None]
